FAERS Safety Report 8447648-5 (Version None)
Quarter: 2012Q2

REPORT INFORMATION
  Report Type: 
  Country: None (occurrence: None)
  Receive Date: 20120619
  Receipt Date: 20120614
  Transmission Date: 20120825
  Serious: Yes (Hospitalization)
  Sender: FDA-Public Use
  Company Number: FR-PFIZER INC-2012143098

PATIENT
  Age: 90 Year
  Sex: Male

DRUGS (6)
  1. AVODART [Concomitant]
  2. LASIX [Suspect]
     Dosage: 20 MG, 1X/DAY
     Route: 048
     Dates: start: 20120316, end: 20120516
  3. ALDACTONE [Suspect]
     Dosage: 50 MG, 1X/DAY
     Route: 048
     Dates: start: 20120316, end: 20120516
  4. IRBESARTAN [Suspect]
     Dosage: 300 MG, 1X/DAY
     Route: 048
     Dates: start: 20120316, end: 20120516
  5. ACETAMINOPHEN [Concomitant]
  6. TAMSULOSIN [Concomitant]

REACTIONS (2)
  - RENAL FAILURE [None]
  - DEHYDRATION [None]
